FAERS Safety Report 18504436 (Version 1)
Quarter: 2020Q4

REPORT INFORMATION
  Report Type: Other
  Country: CA (occurrence: CA)
  Receive Date: 20201113
  Receipt Date: 20201113
  Transmission Date: 20210114
  Serious: Yes (Other)
  Sender: FDA-Public Use
  Company Number: CA-CELLTRION INC.-2020CA031043

PATIENT

DRUGS (11)
  1. CITALOPRAM [Concomitant]
     Active Substance: CITALOPRAM HYDROBROMIDE
  2. FOLIC ACID. [Concomitant]
     Active Substance: FOLIC ACID
  3. METHOTREXATE. [Concomitant]
     Active Substance: METHOTREXATE
  4. ACTEMRA [Suspect]
     Active Substance: TOCILIZUMAB
     Indication: RHEUMATOID ARTHRITIS
     Dosage: 800 MG
     Route: 042
  5. ACETAMINOPHEN. [Concomitant]
     Active Substance: ACETAMINOPHEN
     Indication: PREMEDICATION
     Dosage: 100 MG
     Route: 048
  6. DIPHENHYDRAMINE HCL [Concomitant]
     Active Substance: DIPHENHYDRAMINE HYDROCHLORIDE
     Indication: PREMEDICATION
     Dosage: 50 MG
     Route: 048
  7. PANTOPRAZOLE [Concomitant]
     Active Substance: PANTOPRAZOLE
  8. RITUXIMAB (UNKNOWN) [Suspect]
     Active Substance: RITUXIMAB
     Indication: RHEUMATOID ARTHRITIS
     Dosage: 1000 MG
     Route: 042
  9. PREDNISONE. [Concomitant]
     Active Substance: PREDNISONE
  10. ACETAMINOPHEN. [Concomitant]
     Active Substance: ACETAMINOPHEN
     Dosage: 1000 MG
     Route: 048
  11. METHYLPREDNISOLONE. [Concomitant]
     Active Substance: METHYLPREDNISOLONE
     Indication: PREMEDICATION
     Dosage: 100 MG
     Route: 042

REACTIONS (10)
  - Disability [Not Recovered/Not Resolved]
  - Therapeutic response shortened [Not Recovered/Not Resolved]
  - Infusion related reaction [Not Recovered/Not Resolved]
  - Sleep disorder [Not Recovered/Not Resolved]
  - Fatigue [Not Recovered/Not Resolved]
  - Throat irritation [Not Recovered/Not Resolved]
  - Depression [Not Recovered/Not Resolved]
  - Transaminases increased [Not Recovered/Not Resolved]
  - Weight increased [Not Recovered/Not Resolved]
  - Rash [Not Recovered/Not Resolved]
